FAERS Safety Report 8127379-1 (Version None)
Quarter: 2012Q1

REPORT INFORMATION
  Report Type: 
  Country: None (occurrence: None)
  Receive Date: 20120210
  Receipt Date: 20120206
  Transmission Date: 20120608
  Serious: Yes (Death)
  Sender: FDA-Public Use
  Company Number: JP-BRISTOL-MYERS SQUIBB COMPANY-16359895

PATIENT
  Age: 83 Year
  Sex: Male

DRUGS (4)
  1. PREDNISOLONE [Concomitant]
     Dosage: 5MG:01AUG11-16AUG11, 4MG:29AUG11-19DEC11. 10MG:UNK.
     Dates: start: 20110801
  2. ORENCIA [Suspect]
     Indication: RHEUMATOID ARTHRITIS
     Dosage: 16AUG11,29AUG1126SEP11,24OCT11,21NOV11,19DEC11.
     Route: 041
     Dates: start: 20110801
  3. DECADRON [Concomitant]
  4. TACROLIMUS [Concomitant]

REACTIONS (2)
  - MYOCARDIAL INFARCTION [None]
  - INTERSTITIAL LUNG DISEASE [None]
